FAERS Safety Report 5850434-3 (Version None)
Quarter: 2008Q3

REPORT INFORMATION
  Report Type: 
  Country: None (occurrence: None)
  Receive Date: 20080818
  Receipt Date: 20080804
  Transmission Date: 20090109
  Serious: Yes (Other)
  Sender: FDA-Public Use
  Company Number: DSA_32271_2008

PATIENT
  Sex: Male

DRUGS (6)
  1. ENALAPRIL MALEATE [Suspect]
     Indication: DRUG USE FOR UNKNOWN INDICATION
     Dosage: (10 MG BID ORAL), (10 MG QD ORAL)
     Route: 048
  2. TOPROL-XL [Suspect]
     Indication: BLOOD PRESSURE INCREASED
     Dosage: (DF OPRAL), (1/2 TABLET DAILY ORAL)
     Route: 048
     Dates: end: 20010716
  3. TOPROL-XL [Suspect]
     Indication: BLOOD PRESSURE INCREASED
     Dosage: (DF OPRAL), (1/2 TABLET DAILY ORAL)
     Route: 048
     Dates: start: 20010717
  4. ZOLOFT / 010011402/ [Concomitant]
  5. REMERON [Concomitant]
  6. ULTRAM [Concomitant]

REACTIONS (4)
  - BLOOD GLUCOSE INCREASED [None]
  - CEREBROVASCULAR ACCIDENT [None]
  - MOTION SICKNESS [None]
  - VOMITING [None]
